FAERS Safety Report 17216927 (Version 4)
Quarter: 2024Q2

REPORT INFORMATION
  Report Type: Spontaneous
  Country: FR (occurrence: FR)
  Receive Date: 20191231
  Receipt Date: 20240622
  Transmission Date: 20240716
  Serious: Yes (Hospitalization, Disabling, Other)
  Sender: FDA-Public Use
  Company Number: None

PATIENT
  Age: 52 Year
  Sex: Female
  Weight: 90 kg

DRUGS (12)
  1. ENANTONE LP [Suspect]
     Active Substance: LEUPROLIDE ACETATE
     Indication: Endometriosis
     Route: 065
     Dates: start: 2003, end: 2004
  2. CHLORMADINONE ACETATE [Suspect]
     Active Substance: CHLORMADINONE ACETATE
     Indication: Endometriosis
     Route: 048
     Dates: start: 20041009, end: 20170912
  3. GONADORELIN [Suspect]
     Active Substance: GONADORELIN
     Indication: Endometriosis
     Dosage: UNK
     Route: 048
     Dates: start: 2003, end: 2004
  4. CYPROTERONE ACETATE [Suspect]
     Active Substance: CYPROTERONE ACETATE
     Indication: Endometriosis
     Route: 048
     Dates: start: 20041009, end: 20170912
  5. CYPROTERONE ACETATE [Suspect]
     Active Substance: CYPROTERONE ACETATE
     Indication: Endometriosis
     Route: 048
     Dates: start: 2001, end: 2017
  6. NOMEGESTROL ACETATE [Concomitant]
     Active Substance: NOMEGESTROL ACETATE
     Indication: Polycystic ovarian syndrome
     Dosage: UNK
     Dates: start: 19931201, end: 19940411
  7. NOMEGESTROL ACETATE [Concomitant]
     Active Substance: NOMEGESTROL ACETATE
     Indication: Polycystic ovarian syndrome
     Dosage: UNK
     Dates: start: 20100331, end: 20150407
  8. NOMEGESTROL ACETATE [Concomitant]
     Active Substance: NOMEGESTROL ACETATE
     Indication: Polycystic ovarian syndrome
     Dosage: UNK
     Dates: start: 20020305
  9. NOMEGESTROL ACETATE [Concomitant]
     Active Substance: NOMEGESTROL ACETATE
     Indication: Polycystic ovarian syndrome
     Dosage: UNK
     Dates: start: 20081112, end: 20190401
  10. NOMEGESTROL ACETATE [Concomitant]
     Active Substance: NOMEGESTROL ACETATE
     Indication: Polycystic ovarian syndrome
     Dosage: UNK
     Dates: start: 20200127
  11. NOMEGESTROL ACETATE [Concomitant]
     Active Substance: NOMEGESTROL ACETATE
     Indication: Polycystic ovarian syndrome
     Dosage: UNK
     Dates: start: 19950308
  12. LEVOTHYROXINE [Concomitant]
     Active Substance: LEVOTHYROXINE\LEVOTHYROXINE SODIUM
     Indication: Polycystic ovarian syndrome
     Dosage: UNK
     Dates: start: 2007

REACTIONS (39)
  - Meningioma [Recovered/Resolved]
  - Depression [Not Recovered/Not Resolved]
  - Monoplegia [Unknown]
  - Brain neoplasm benign [Not Recovered/Not Resolved]
  - Weight increased [Unknown]
  - Cerebral disorder [Unknown]
  - Hemiparesis [Unknown]
  - Musculoskeletal stiffness [Unknown]
  - Headache [Unknown]
  - Off label use [Unknown]
  - Musculoskeletal disorder [Unknown]
  - Facial paralysis [Unknown]
  - Trismus [Unknown]
  - Sleep apnoea syndrome [Unknown]
  - Obstructive airways disorder [Unknown]
  - Nervous system disorder [Unknown]
  - Memory impairment [Recovered/Resolved]
  - Fatigue [Unknown]
  - Epilepsy [Unknown]
  - Dysgraphia [Unknown]
  - Visual impairment [Unknown]
  - Aphasia [Unknown]
  - Product use in unapproved indication [Unknown]
  - Muscular weakness [Unknown]
  - Language disorder [Unknown]
  - Mental fatigue [Unknown]
  - Malaise [Unknown]
  - Pain [Unknown]
  - Paralysis [Unknown]
  - Dyspnoea [Unknown]
  - Irritability [Recovered/Resolved]
  - Speech disorder [Unknown]
  - Gait disturbance [Unknown]
  - Hypoaesthesia oral [Unknown]
  - Anxiety [Unknown]
  - Pituitary tumour [Unknown]
  - Impaired work ability [Unknown]
  - Loss of personal independence in daily activities [Unknown]
  - Frontotemporal dementia [Unknown]

NARRATIVE: CASE EVENT DATE: 20050101
